FAERS Safety Report 17663333 (Version 1)
Quarter: 2020Q2

REPORT INFORMATION
  Report Type: Spontaneous
  Country: US (occurrence: US)
  Receive Date: 20200413
  Receipt Date: 20200413
  Transmission Date: 20200713
  Serious: Yes (Other)
  Sender: FDA-Public Use
  Company Number: US-009507513-2004USA002739

PATIENT
  Age: 80 Year
  Sex: Female

DRUGS (1)
  1. KEYTRUDA [Suspect]
     Active Substance: PEMBROLIZUMAB
     Indication: ENDOMETRIAL CANCER
     Dosage: EVERY 3 WEEKS
     Dates: start: 201604, end: 201804

REACTIONS (6)
  - Appendix cancer [Recovered/Resolved]
  - Headache [Unknown]
  - Bone pain [Unknown]
  - Myalgia [Unknown]
  - Dizziness [Unknown]
  - Pain [Unknown]
